FAERS Safety Report 14603608 (Version 2)
Quarter: 2018Q1

REPORT INFORMATION
  Report Type: Other
  Country: US (occurrence: US)
  Receive Date: 20180306
  Receipt Date: 20180323
  Transmission Date: 20180509
  Serious: Yes (Death, Life-Threatening, Hospitalization, Other)
  Sender: FDA-Public Use
  Company Number: US-UNITED THERAPEUTICS-UNT-2018-002008

PATIENT
  Age: 64 Year
  Sex: Male
  Weight: 126.98 kg

DRUGS (2)
  1. ORENITRAM [Suspect]
     Active Substance: TREPROSTINIL
     Indication: PULMONARY HYPERTENSION
     Dosage: 2 MG, TID
     Route: 048
     Dates: start: 20170803
  2. ORENITRAM [Suspect]
     Active Substance: TREPROSTINIL
     Indication: PULMONARY ARTERIAL HYPERTENSION
     Dosage: UNK
     Route: 048

REACTIONS (6)
  - Fluid retention [Unknown]
  - Dysphagia [Unknown]
  - Dehydration [Unknown]
  - Dyspnoea [Unknown]
  - Respiratory arrest [Fatal]
  - Dyskinesia [Unknown]

NARRATIVE: CASE EVENT DATE: 20180206
